FAERS Safety Report 21258011 (Version 2)
Quarter: 2022Q3

REPORT INFORMATION
  Report Type: Spontaneous
  Country: JP (occurrence: JP)
  Receive Date: 20220826
  Receipt Date: 20220921
  Transmission Date: 20221027
  Serious: Yes (Hospitalization)
  Sender: FDA-Public Use
  Company Number: JP-CHUGAI-2022032927AA

PATIENT
  Age: 37 Year
  Sex: Male

DRUGS (4)
  1. BENDAMUSTINE HYDROCHLORIDE [Suspect]
     Active Substance: BENDAMUSTINE HYDROCHLORIDE
     Indication: Follicular lymphoma
     Route: 041
     Dates: start: 20210215, end: 20210804
  2. GAZYVA [Suspect]
     Active Substance: OBINUTUZUMAB
     Indication: Follicular lymphoma
     Route: 041
     Dates: start: 20210215, end: 20210223
  3. GAZYVA [Suspect]
     Active Substance: OBINUTUZUMAB
     Route: 041
     Dates: start: 2021, end: 20211022
  4. GAZYVA [Suspect]
     Active Substance: OBINUTUZUMAB
     Route: 041
     Dates: start: 20210215, end: 20210223

REACTIONS (4)
  - Pneumothorax [Unknown]
  - Febrile neutropenia [Unknown]
  - Throat irritation [Recovered/Resolved]
  - Urticaria [Recovered/Resolved]

NARRATIVE: CASE EVENT DATE: 20210215
